FAERS Safety Report 12998828 (Version 1)
Quarter: 2016Q4

REPORT INFORMATION
  Report Type: Spontaneous
  Country: FR (occurrence: FR)
  Receive Date: 20161205
  Receipt Date: 20161205
  Transmission Date: 20170207
  Serious: Yes (Hospitalization, Disabling)
  Sender: FDA-Public Use
  Company Number: FR-PFIZER INC-2016555357

PATIENT
  Age: 84 Year
  Sex: Female

DRUGS (10)
  1. XANAX [Suspect]
     Active Substance: ALPRAZOLAM
     Dosage: 0.125 MG, 1X/DAY
     Route: 048
  2. INEXIUM [Concomitant]
     Active Substance: ESOMEPRAZOLE
  3. KARDEGIC [Concomitant]
     Active Substance: ASPIRIN LYSINE
  4. CALCIDOSE VITAMINE D [Concomitant]
     Active Substance: CALCIUM\CHOLECALCIFEROL
  5. LEVOTHYROX [Concomitant]
     Active Substance: LEVOTHYROXINE
  6. EFFEXOR [Concomitant]
     Active Substance: VENLAFAXINE HYDROCHLORIDE
  7. NEURONTIN [Suspect]
     Active Substance: GABAPENTIN
     Indication: LUMBAR SPINAL STENOSIS
     Dosage: UNK
     Route: 048
     Dates: start: 20161010, end: 20161021
  8. EBIXA [Concomitant]
     Active Substance: MEMANTINE HYDROCHLORIDE
  9. TIMOFEROL [Concomitant]
     Active Substance: ASCORBIC ACID\FERROUS SULFATE
  10. DOLIPRANE [Concomitant]
     Active Substance: ACETAMINOPHEN

REACTIONS (4)
  - Fall [Recovered/Resolved with Sequelae]
  - Rhabdomyolysis [Unknown]
  - Skeletal injury [Unknown]
  - Chest injury [Unknown]

NARRATIVE: CASE EVENT DATE: 201610
